FAERS Safety Report 9249456 (Version 1)
Quarter: 2013Q1

REPORT INFORMATION
  Report Type: Spontaneous
  Country: US (occurrence: None)
  Receive Date: 20130305
  Receipt Date: 20130305
  Transmission Date: 20140127
  Serious: Yes (Disabling)
  Sender: FDA-Public Use
  Company Number: 163-21880-12100808

PATIENT
  Age: 73 Year
  Sex: Female
  Weight: 69.85 kg

DRUGS (11)
  1. REVLIMID (LENALIDOMIDE) (CAPSULES) [Suspect]
     Indication: PLASMA CELL MYELOMA
     Dosage: 10 MG, ONCE A DAY FOR 3 WEEKS, PO
     Dates: start: 201104
  2. ACYCLOVIR (ACICLOVIR) [Concomitant]
  3. CALCIUM (CALCIUM) [Concomitant]
  4. LEVOXYL (LEVOTHYROXINE SODIUM) [Concomitant]
  5. VITAMINS [Concomitant]
  6. NEURONTIN (GABAPENTIN) [Concomitant]
  7. OMEPRAZOLE (OMEPRAZOLE) [Concomitant]
  8. SIMVASTATIN (SIMVASTATIN) [Concomitant]
  9. TYLENOL (PARACETAMOL) [Concomitant]
  10. WARFARIN (WARFARIN) [Concomitant]
  11. CALTRATE (CALCIUM CARBONATE) [Concomitant]

REACTIONS (1)
  - Herpes zoster [None]
